FAERS Safety Report 7348247-9 (Version None)
Quarter: 2011Q1

REPORT INFORMATION
  Report Type: 
  Country: None (occurrence: None)
  Receive Date: 20110311
  Receipt Date: 20110303
  Transmission Date: 20110831
  Serious: Yes (Hospitalization, Disabling, Other)
  Sender: FDA-Public Use
  Company Number: CH-NOVOPROD-308972

PATIENT
  Age: 84 Year
  Sex: Male
  Weight: 95 kg

DRUGS (15)
  1. LANTUS [Concomitant]
     Indication: TYPE 2 DIABETES MELLITUS
     Dosage: 30 IU, QD
     Route: 058
     Dates: start: 20080101, end: 20100401
  2. INSULATARD [Concomitant]
     Indication: TYPE 2 DIABETES MELLITUS
     Dosage: 26+20 UNITS/QD
     Dates: start: 20100401
  3. ASPIRIN [Concomitant]
     Dosage: 100 MG, UNK
  4. VITAMIN B-12 [Concomitant]
     Dosage: UNKNOWN
  5. SORTIS                             /01326101/ [Concomitant]
     Dosage: UNKNOWN
  6. VESICARE [Concomitant]
     Dosage: UNKNOWN
  7. VICTOZA [Suspect]
     Indication: TYPE 2 DIABETES MELLITUS
     Dosage: 0.6 MG, QD
     Route: 058
     Dates: start: 20100130, end: 20100228
  8. ZYLORIC [Concomitant]
  9. APROVEL [Concomitant]
     Dosage: UNKNOWN
     Dates: end: 20100222
  10. ZANEDIP [Concomitant]
     Dosage: UNKNOWN
  11. COZAAR [Concomitant]
     Dosage: UNKNOWN
     Dates: end: 20100222
  12. BENERVA [Concomitant]
     Dosage: UNKNOWN
  13. BYETTA [Suspect]
     Indication: TYPE 2 DIABETES MELLITUS
     Dosage: 5 MG, BID
     Route: 058
     Dates: start: 20091209, end: 20100115
  14. NEXIUM [Concomitant]
     Dosage: UNKNOWN
  15. ZOLOFT [Concomitant]
     Dosage: UNKNOWN

REACTIONS (2)
  - BLOOD CREATININE INCREASED [None]
  - TUBULOINTERSTITIAL NEPHRITIS [None]
